FAERS Safety Report 20211181 (Version 1)
Quarter: 2021Q4

REPORT INFORMATION
  Report Type: Spontaneous
  Country: CN (occurrence: None)
  Receive Date: 20211221
  Receipt Date: 20211221
  Transmission Date: 20220303
  Serious: Yes (Other)
  Sender: FDA-Public Use
  Company Number: CN-ROCHE-2977277

PATIENT

DRUGS (3)
  1. GAZYVA [Suspect]
     Active Substance: OBINUTUZUMAB
     Indication: Product used for unknown indication
     Route: 042
     Dates: start: 20210828
  2. GEMCITABINE [Concomitant]
     Active Substance: GEMCITABINE
  3. OXALIPLATIN [Concomitant]
     Active Substance: OXALIPLATIN

REACTIONS (6)
  - Pneumothorax [Recovering/Resolving]
  - Cardiac failure [Recovering/Resolving]
  - Myelosuppression [Recovering/Resolving]
  - Infection [Recovering/Resolving]
  - Tachypnoea [Recovering/Resolving]
  - Exercise tolerance decreased [Recovering/Resolving]
